FAERS Safety Report 22620785 (Version 2)
Quarter: 2023Q2

REPORT INFORMATION
  Report Type: Spontaneous
  Country: US (occurrence: US)
  Receive Date: 20230620
  Receipt Date: 20230627
  Transmission Date: 20230722
  Serious: Yes (Hospitalization)
  Sender: FDA-Public Use
  Company Number: US-PFIZER INC-202300220270

PATIENT
  Age: 86 Year
  Sex: Female
  Weight: 49.5 kg

DRUGS (3)
  1. METRONIDAZOLE [Suspect]
     Active Substance: METRONIDAZOLE
     Indication: Diverticulitis
     Dosage: UNK
  2. CIPROFLOXACIN [Suspect]
     Active Substance: CIPROFLOXACIN
     Indication: Diverticulitis
     Dosage: UNK
  3. ONTORPACEPT [Concomitant]
     Active Substance: ONTORPACEPT
     Indication: Peripheral T-cell lymphoma unspecified
     Dosage: UNK

REACTIONS (1)
  - Drug ineffective [Unknown]
